FAERS Safety Report 7956745-X (Version None)
Quarter: 2011Q4

REPORT INFORMATION
  Report Type: 
  Country: None (occurrence: None)
  Receive Date: 20111205
  Receipt Date: 20111125
  Transmission Date: 20120403
  Serious: Yes (Hospitalization)
  Sender: FDA-Public Use
  Company Number: US-BAYER-2011-034684

PATIENT
  Age: 28 Year
  Sex: Female
  Weight: 68 kg

DRUGS (10)
  1. YAZ [Suspect]
     Indication: ACNE
     Dosage: UNK
     Dates: start: 20080220, end: 20100130
  2. YAZ [Suspect]
     Indication: PREMENSTRUAL SYNDROME
  3. ZOLPIDEM [Concomitant]
     Dosage: 10 MG, UNK
  4. ASPIRIN [Concomitant]
  5. DICLOFENAC SODIUM [Concomitant]
  6. PEPCID [Concomitant]
  7. DIFIL G [Concomitant]
  8. HYDROCODONE BITARTRATE AND ACETAMINOPHEN [Concomitant]
  9. PHENTERMINE [Concomitant]
     Indication: WEIGHT DECREASED
  10. AZITHROMYCIN [Concomitant]
     Dosage: 500 MG, UNK

REACTIONS (7)
  - DEEP VEIN THROMBOSIS [None]
  - PAIN [None]
  - FEAR [None]
  - ANXIETY [None]
  - INJURY [None]
  - PULMONARY EMBOLISM [None]
  - DEPRESSION [None]
